FAERS Safety Report 11634129 (Version 1)
Quarter: 2015Q4

REPORT INFORMATION
  Report Type: Spontaneous
  Country: US (occurrence: US)
  Receive Date: 20151015
  Receipt Date: 20151015
  Transmission Date: 20160304
  Serious: No
  Sender: FDA-Public Use
  Company Number: US-INDIVIOR-RB-72822-2014

PATIENT
  Age: 28 Year
  Sex: Female

DRUGS (1)
  1. SUBOXONE [Suspect]
     Active Substance: BUPRENORPHINE HYDROCHLORIDE\NALOXONE HYDROCHLORIDE
     Indication: DRUG DEPENDENCE
     Dosage: TAKES VARIOUS AMOUNTS, ON AND OFF, PRN; DURATION: 14 MONTHS
     Route: 060
     Dates: start: 201308, end: 20141019

REACTIONS (7)
  - Drug withdrawal syndrome [Not Recovered/Not Resolved]
  - Substance abuse [Recovered/Resolved]
  - Product preparation error [Recovered/Resolved]
  - Decreased appetite [Not Recovered/Not Resolved]
  - Psychomotor hyperactivity [Not Recovered/Not Resolved]
  - Insomnia [Not Recovered/Not Resolved]
  - Lice infestation [Not Recovered/Not Resolved]

NARRATIVE: CASE EVENT DATE: 201308
